FAERS Safety Report 12705850 (Version 1)
Quarter: 2016Q3

REPORT INFORMATION
  Report Type: Spontaneous
  Country: US (occurrence: None)
  Receive Date: 20160831
  Receipt Date: 20160831
  Transmission Date: 20161109
  Serious: No
  Sender: FDA-Public Use
  Company Number: None

PATIENT
  Age: 13 Year
  Sex: Female
  Weight: 45.7 kg

DRUGS (1)
  1. HYDROMORPHONE [Suspect]
     Active Substance: HYDROMORPHONE
     Indication: PAIN
     Dosage: 0.1MG Q10MIN IV?7/26 @ 1030 TILL 7/26@ 17:15
     Route: 042

REACTIONS (2)
  - Erythema [None]
  - Pruritus generalised [None]

NARRATIVE: CASE EVENT DATE: 20160726
